FAERS Safety Report 6880111-1 (Version None)
Quarter: 2010Q3

REPORT INFORMATION
  Report Type: 
  Country: None (occurrence: None)
  Receive Date: 20100728
  Receipt Date: 20091112
  Transmission Date: 20110219
  Serious: No
  Sender: FDA-Public Use
  Company Number: US-BRISTOL-MYERS SQUIBB COMPANY-14842454

PATIENT
  Age: 32 Year
  Sex: Male

DRUGS (12)
  1. SPRYCEL [Suspect]
     Indication: CHRONIC MYELOID LEUKAEMIA
     Route: 048
     Dates: start: 20091014
  2. PEPCID [Concomitant]
  3. CENTRUM [Concomitant]
  4. OSCAL D [Concomitant]
  5. PHENERGAN [Concomitant]
  6. ZOFRAN [Concomitant]
  7. XANAX [Concomitant]
  8. ACETAMINOPHEN [Concomitant]
  9. OXYCODONE [Concomitant]
  10. SENOKOT [Concomitant]
  11. COLACE [Concomitant]
  12. MIRALAX [Concomitant]

REACTIONS (2)
  - ARTHRALGIA [None]
  - SWELLING [None]
